FAERS Safety Report 5175697-1 (Version None)
Quarter: 2006Q4

REPORT INFORMATION
  Report Type: 
  Country: None (occurrence: None)
  Receive Date: 20061215
  Receipt Date: 20061209
  Transmission Date: 20070319
  Serious: Yes (Other)
  Sender: FDA-Public Use
  Company Number: US-AVENTIS-200619991US

PATIENT
  Sex: Female

DRUGS (8)
  1. LANTUS [Suspect]
     Indication: DIABETES MELLITUS NON-INSULIN-DEPENDENT
     Dates: start: 20060101
  2. OPTICLIK (INSULIN INJECTION PEN) [Suspect]
     Dates: start: 20060101
  3. ALTACE [Concomitant]
     Dosage: DOSE: UNK
  4. ALPRAZOLAM [Concomitant]
     Dosage: DOSE: UNK
  5. GLUCOVANCE                         /01503701/ [Concomitant]
     Dosage: DOSE: UNK
  6. DARVOCET-N 100 [Concomitant]
     Dosage: DOSE: UNK
  7. CINAMET [Concomitant]
     Dosage: DOSE: UNK
  8. MECLIZINE [Concomitant]
     Dosage: DOSE: UNK

REACTIONS (8)
  - BLOOD GLUCOSE INCREASED [None]
  - BLOOD PRESSURE INCREASED [None]
  - DISTURBANCE IN ATTENTION [None]
  - DRUG INEFFECTIVE [None]
  - DYSARTHRIA [None]
  - INJECTION SITE ERYTHEMA [None]
  - MALAISE [None]
  - THINKING ABNORMAL [None]
